FAERS Safety Report 20087075 (Version 2)
Quarter: 2021Q4

REPORT INFORMATION
  Report Type: Spontaneous
  Country: US (occurrence: US)
  Receive Date: 20211118
  Receipt Date: 20211201
  Transmission Date: 20220303
  Serious: Yes (Hospitalization)
  Sender: FDA-Public Use
  Company Number: US-TEVA-2021-US-1977438

PATIENT
  Age: 61 Year
  Sex: Male

DRUGS (3)
  1. COLCHICINE [Interacting]
     Active Substance: COLCHICINE
     Indication: Pericardial haemorrhage
     Dosage: 1.2 MILLIGRAM DAILY; 1.2 MG LOADING DOSE AND TEN SUBSEQUENT DOSES OF 0.6 MG TWICE DAILY
     Route: 065
  2. CARBAMAZEPINE [Interacting]
     Active Substance: CARBAMAZEPINE
     Indication: Seizure prophylaxis
     Route: 065
  3. IBUPROFEN [Concomitant]
     Active Substance: IBUPROFEN
     Indication: Pericardial haemorrhage
     Dosage: 2400 MILLIGRAM DAILY; THREE TIMES DAILY
     Route: 065

REACTIONS (4)
  - Nausea [Recovered/Resolved]
  - Acute generalised exanthematous pustulosis [Recovered/Resolved]
  - Drug interaction [Unknown]
  - Drug level decreased [Unknown]
